FAERS Safety Report 14448683 (Version 3)
Quarter: 2018Q3

REPORT INFORMATION
  Report Type: Spontaneous
  Country: US (occurrence: US)
  Receive Date: 20180126
  Receipt Date: 20180905
  Transmission Date: 20181010
  Serious: Yes (Hospitalization)
  Sender: FDA-Public Use
  Company Number: US-DSJP-DSU-2017-138545

PATIENT

DRUGS (2)
  1. BENICAR [Suspect]
     Active Substance: OLMESARTAN MEDOXOMIL
     Indication: PRODUCT USED FOR UNKNOWN INDICATION
     Dosage: 40 MG, QD
     Dates: start: 20080528
  2. BENICAR HCT [Suspect]
     Active Substance: HYDROCHLOROTHIAZIDE\OLMESARTAN MEDOXOMIL
     Indication: PRODUCT USED FOR UNKNOWN INDICATION
     Dosage: UNK
     Dates: start: 20080528, end: 20150623

REACTIONS (9)
  - Duodenal ulcer [Unknown]
  - Gastrooesophageal reflux disease [Unknown]
  - Oesophageal candidiasis [Unknown]
  - Diverticulum [Unknown]
  - Haemorrhoids [Unknown]
  - Large intestine polyp [Unknown]
  - Gastric polyps [Unknown]
  - Sprue-like enteropathy [Recovered/Resolved]
  - Hiatus hernia [Not Recovered/Not Resolved]

NARRATIVE: CASE EVENT DATE: 20120212
